FAERS Safety Report 8032512-6 (Version None)
Quarter: 2012Q1

REPORT INFORMATION
  Report Type: 
  Country: None (occurrence: None)
  Receive Date: 20120105
  Receipt Date: 20111228
  Transmission Date: 20120608
  Serious: Yes (Death)
  Sender: FDA-Public Use
  Company Number: 1000025642

PATIENT
  Age: 82 Year
  Sex: Female

DRUGS (6)
  1. EPA (OMEGA-3 TRIGLYCERIDES) [Concomitant]
  2. MEMANTINE HYDROCHLORIDE [Suspect]
     Indication: DEMENTIA
     Dosage: 5 (5 MG, 1 IN 1 D), ORAL; 10 (10 MG, 1 IN 1 D), ORAL; 15 MG (15 MG, 1 IN 1 D), ORAL
     Route: 048
     Dates: start: 20110101, end: 20110101
  3. MEMANTINE HYDROCHLORIDE [Suspect]
     Indication: DEMENTIA
     Dosage: 5 (5 MG, 1 IN 1 D), ORAL; 10 (10 MG, 1 IN 1 D), ORAL; 15 MG (15 MG, 1 IN 1 D), ORAL
     Route: 048
     Dates: start: 20110101, end: 20110101
  4. MEMANTINE HYDROCHLORIDE [Suspect]
     Indication: DEMENTIA
     Dosage: 5 (5 MG, 1 IN 1 D), ORAL; 10 (10 MG, 1 IN 1 D), ORAL; 15 MG (15 MG, 1 IN 1 D), ORAL
     Route: 048
     Dates: start: 20110901, end: 20110101
  5. BUFFERIN [Concomitant]
  6. MEMANTINE HYDROCHLORIDE [Suspect]
     Indication: DEMENTIA
     Dosage: 20 MG (20 MG, 1 IN 1 D), ORAL
     Route: 048
     Dates: start: 20110101, end: 20111013

REACTIONS (12)
  - BLOOD UREA INCREASED [None]
  - NEUTROPHIL PERCENTAGE INCREASED [None]
  - PULMONARY FIBROSIS [None]
  - PNEUMONIA ASPIRATION [None]
  - BLOOD CREATINE PHOSPHOKINASE INCREASED [None]
  - ACUTE RESPIRATORY DISTRESS SYNDROME [None]
  - BODY TEMPERATURE DECREASED [None]
  - HAEMOGLOBIN DECREASED [None]
  - SYNCOPE [None]
  - WHITE BLOOD CELL COUNT INCREASED [None]
  - CONVULSION [None]
  - RESPIRATORY FAILURE [None]
